FAERS Safety Report 24593380 (Version 1)
Quarter: 2024Q4

REPORT INFORMATION
  Report Type: Spontaneous
  Country: US (occurrence: None)
  Receive Date: 20241107
  Receipt Date: 20241107
  Transmission Date: 20250114
  Serious: No
  Sender: Public
  Company Number: None

PATIENT
  Age: 79 Year
  Sex: Male

DRUGS (1)
  1. POMALYST [Suspect]
     Active Substance: POMALIDOMIDE
     Indication: Plasma cell myeloma
     Dosage: 2MG QD ORAL
     Route: 048
     Dates: start: 20240731, end: 20241004

REACTIONS (1)
  - Hospice care [None]

NARRATIVE: CASE EVENT DATE: 20241102
